FAERS Safety Report 6742451-6 (Version None)
Quarter: 2010Q2

REPORT INFORMATION
  Report Type: 
  Country: None (occurrence: None)
  Receive Date: 20100524
  Receipt Date: 20100512
  Transmission Date: 20101027
  Serious: Yes (Hospitalization)
  Sender: FDA-Public Use
  Company Number: 2010040042

PATIENT
  Age: 61 Year
  Sex: Male
  Weight: 59 kg

DRUGS (4)
  1. TORSEMIDE [Suspect]
     Indication: ELECTROCARDIOGRAM ST SEGMENT ELEVATION
     Dosage: 8 MG (8 MG, 1 IN 1 D)
  2. LOSARTAN POTASSIUM [Concomitant]
  3. PREDNISOLONE [Concomitant]
  4. MECOBALAMINE (MECOBALAMINE) [Concomitant]

REACTIONS (8)
  - CARDIAC FAILURE HIGH OUTPUT [None]
  - NO THERAPEUTIC RESPONSE [None]
  - NYSTAGMUS [None]
  - PULMONARY CONGESTION [None]
  - PULMONARY HYPERTENSION [None]
  - TRICUSPID VALVE INCOMPETENCE [None]
  - VITAMIN B1 DEFICIENCY [None]
  - WERNICKE'S ENCEPHALOPATHY [None]
